FAERS Safety Report 4512044-X (Version None)
Quarter: 2004Q4

REPORT INFORMATION
  Report Type: 
  Country: None (occurrence: None)
  Receive Date: 20041123
  Receipt Date: 20041115
  Transmission Date: 20050328
  Serious: Yes (Other)
  Sender: FDA-Public Use
  Company Number: HQWYE478616NOV04

PATIENT
  Age: 51 Year
  Sex: Female
  Weight: 65.83 kg

DRUGS (4)
  1. PREMARIN [Suspect]
     Indication: HOT FLUSH
     Dosage: 1 TABLET 1X PER 1  DAY, ORAL
     Route: 048
     Dates: start: 20041108, end: 20041112
  2. PREMARIN [Suspect]
     Indication: HOT FLUSH
     Dosage: 1 TABLET 1X PER 1  DAY, ORAL
     Route: 048
     Dates: start: 20041115
  3. ZOLOFT 9SERTRALINE HYDROCHLORIDE) [Concomitant]
  4. SYNTHROID (LEVOTHYROXINE SIODUM) [Concomitant]

REACTIONS (4)
  - BLISTER [None]
  - HOT FLUSH [None]
  - HYPERSENSITIVITY [None]
  - SWOLLEN TONGUE [None]
